FAERS Safety Report 7443272-1 (Version None)
Quarter: 2011Q2

REPORT INFORMATION
  Report Type: 
  Country: None (occurrence: None)
  Receive Date: 20110428
  Receipt Date: 20100730
  Transmission Date: 20111010
  Serious: No
  Sender: FDA-Public Use
  Company Number: US-PFIZER INC-2010096955

PATIENT
  Sex: Male

DRUGS (1)
  1. ZMAX [Suspect]
     Indication: SINUSITIS
     Dosage: 2 G, SINGLE
     Dates: start: 20100701, end: 20100701

REACTIONS (1)
  - DIARRHOEA [None]
